FAERS Safety Report 16033895 (Version 7)
Quarter: 2019Q4

REPORT INFORMATION
  Report Type: Report from Study
  Country: US (occurrence: US)
  Receive Date: 20190305
  Receipt Date: 20191014
  Transmission Date: 20200122
  Serious: Yes (Death, Life-Threatening, Hospitalization)
  Sender: FDA-Public Use
  Company Number: US-ROCHE-2269581

PATIENT
  Age: 78 Year
  Sex: Male
  Weight: 74.91 kg

DRUGS (2)
  1. XELODA [Suspect]
     Active Substance: CAPECITABINE
     Dosage: 4 TABLETS IN MORNING AND 4 IN THE EVENING ;ONGOING: NO
     Route: 048
     Dates: start: 20181117, end: 20181126
  2. XELODA [Suspect]
     Active Substance: CAPECITABINE
     Indication: BILE DUCT CANCER
     Dosage: 4 TABLETS IN MORNING AND 4 IN THE EVENING ;ONGOING: NO
     Route: 048
     Dates: start: 20181117

REACTIONS (18)
  - Cardiac arrest [Fatal]
  - White blood cell count decreased [Unknown]
  - Weight decreased [Unknown]
  - Delirium [Unknown]
  - Mucosal inflammation [Unknown]
  - Diarrhoea [Unknown]
  - Neutropenia [Unknown]
  - Vomiting [Unknown]
  - Intentional product use issue [Unknown]
  - Blister [Unknown]
  - Off label use [Unknown]
  - Respiratory failure [Fatal]
  - Rash [Unknown]
  - Dehydration [Unknown]
  - Pneumonia [Fatal]
  - Drug clearance decreased [Fatal]
  - Pyrexia [Unknown]
  - Oral mucosal blistering [Unknown]

NARRATIVE: CASE EVENT DATE: 20181123
